FAERS Safety Report 14948840 (Version 2)
Quarter: 2018Q3

REPORT INFORMATION
  Report Type: Spontaneous
  Country: US (occurrence: US)
  Receive Date: 20180529
  Receipt Date: 20180822
  Transmission Date: 20181010
  Serious: Yes (Other)
  Sender: FDA-Public Use
  Company Number: US-SHIRE-US201819792

PATIENT
  Age: 65 Year
  Sex: Female

DRUGS (3)
  1. NUCYNTA [Concomitant]
     Active Substance: TAPENTADOL HYDROCHLORIDE
     Indication: PELVIC PAIN
  2. GATTEX [Suspect]
     Active Substance: TEDUGLUTIDE\WATER
     Indication: SHORT-BOWEL SYNDROME
     Dosage: 0.2 ML, 1X/DAY:QD
     Route: 058
     Dates: start: 201404
  3. AZATHIOPRINE. [Concomitant]
     Active Substance: AZATHIOPRINE
     Indication: CROHN^S DISEASE

REACTIONS (2)
  - Corneal degeneration [Not Recovered/Not Resolved]
  - Corneal dystrophy [Unknown]

NARRATIVE: CASE EVENT DATE: 20180201
